FAERS Safety Report 9546995 (Version 1)
Quarter: 2013Q2

REPORT INFORMATION
  Report Type: Spontaneous
  Country: US (occurrence: None)
  Receive Date: 20130524
  Receipt Date: 20130524
  Transmission Date: 20140414
  Serious: No
  Sender: FDA-Public Use
  Company Number: PHEH2012US024517

PATIENT
  Age: 28 Year
  Sex: Female

DRUGS (1)
  1. GILENYA (FINGOLIMIOD) CAPSULE, 0.5MG [Suspect]
     Indication: MULTIPLE SCLEROSIS
     Route: 048
     Dates: start: 20121026

REACTIONS (1)
  - Malaise [None]
